FAERS Safety Report 9946865 (Version 1)
Quarter: 2014Q1

REPORT INFORMATION
  Report Type: Report from Study
  Country: US (occurrence: US)
  Receive Date: 20140303
  Receipt Date: 20140303
  Transmission Date: 20141002
  Serious: No
  Sender: FDA-Public Use
  Company Number: US-ABBVIE-13P-163-1061786-00

PATIENT
  Age: 72 Year
  Sex: Female

DRUGS (7)
  1. HUMIRA [Suspect]
     Indication: RHEUMATOID ARTHRITIS
  2. PROPRANOLOL [Concomitant]
     Indication: HYPERTENSION
  3. METOPROLOL [Concomitant]
     Indication: HYPERTENSION
  4. LISINOPRIL [Concomitant]
     Indication: HYPERTENSION
  5. METFORMIN [Concomitant]
     Indication: DRUG THERAPY
  6. FOLIC ACID [Concomitant]
     Indication: PRODUCT USED FOR UNKNOWN INDICATION
  7. DAILY VITAMINS [Concomitant]
     Indication: PRODUCT USED FOR UNKNOWN INDICATION

REACTIONS (3)
  - Opportunistic infection [Not Recovered/Not Resolved]
  - Rheumatoid arthritis [Unknown]
  - Hypertension [Unknown]
